FAERS Safety Report 14002984 (Version 2)
Quarter: 2017Q4

REPORT INFORMATION
  Report Type: Spontaneous
  Country: CA (occurrence: CA)
  Receive Date: 20170922
  Receipt Date: 20171020
  Transmission Date: 20180321
  Serious: Yes (Death)
  Sender: FDA-Public Use
  Company Number: CA-ALLERGAN-1753900US

PATIENT
  Age: 67 Year
  Sex: Female

DRUGS (1)
  1. BOTOX [Suspect]
     Active Substance: ONABOTULINUMTOXINA
     Indication: TORTICOLLIS
     Dosage: 220 UNITS, SINGLE
     Route: 030

REACTIONS (7)
  - Asthenia [Fatal]
  - Muscular weakness [Fatal]
  - Dyspnoea [Fatal]
  - Apnoea [Fatal]
  - Chest pain [Fatal]
  - Pneumonia aspiration [Fatal]
  - Eyelid ptosis [Fatal]
